FAERS Safety Report 16562666 (Version 2)
Quarter: 2020Q2

REPORT INFORMATION
  Report Type: Spontaneous
  Country: DE (occurrence: DE)
  Receive Date: 20190711
  Receipt Date: 20200409
  Transmission Date: 20200713
  Serious: Yes (Congenital Anomaly, Other)
  Sender: FDA-Public Use
  Company Number: DE-BAUSCH-BL-2019-019848

PATIENT
  Age: 6 Month
  Sex: Male

DRUGS (9)
  1. FOLIC ACID. [Concomitant]
     Active Substance: FOLIC ACID
     Indication: NEURAL TUBE DEFECT
  2. IODINE. [Concomitant]
     Active Substance: IODINE
     Indication: NEURAL TUBE DEFECT
  3. METOPROLOL. [Concomitant]
     Active Substance: METOPROLOL
     Indication: HYPERTENSION
     Dates: start: 20130502, end: 20131113
  4. DOPEGYT [Suspect]
     Active Substance: METHYLDOPA
     Indication: PRODUCT USED FOR UNKNOWN INDICATION
     Route: 064
     Dates: start: 20130502, end: 20131113
  5. METFORMIN HYDROCHLORIDE. [Suspect]
     Active Substance: METFORMIN HYDROCHLORIDE
     Indication: PRODUCT USED FOR UNKNOWN INDICATION
     Route: 064
     Dates: start: 20130310, end: 20130425
  6. L-THYROXIN [Concomitant]
     Active Substance: LEVOTHYROXINE SODIUM
     Indication: AUTOIMMUNE THYROIDITIS
     Dates: start: 20130310, end: 20131113
  7. RAMIPRIL. [Suspect]
     Active Substance: RAMIPRIL
     Indication: PRODUCT USED FOR UNKNOWN INDICATION
     Route: 064
     Dates: start: 20130310, end: 20130425
  8. INSULIN [Concomitant]
     Active Substance: INSULIN NOS
     Indication: NEURAL TUBE DEFECT
  9. XELEVIA [Suspect]
     Active Substance: SITAGLIPTIN PHOSPHATE
     Indication: PRODUCT USED FOR UNKNOWN INDICATION
     Route: 064
     Dates: start: 20130310, end: 20130425

REACTIONS (5)
  - Foetal exposure during pregnancy [Unknown]
  - Diabetic foetopathy [Recovered/Resolved]
  - Premature baby [Unknown]
  - Atrial septal defect [Unknown]
  - Large for dates baby [Recovering/Resolving]

NARRATIVE: CASE EVENT DATE: 20130502
